FAERS Safety Report 4562521-0 (Version None)
Quarter: 2005Q1

REPORT INFORMATION
  Report Type: 
  Country: None (occurrence: None)
  Receive Date: 20050124
  Receipt Date: 20050112
  Transmission Date: 20050727
  Serious: Yes (Hospitalization)
  Sender: FDA-Public Use
  Company Number: S05-USA-00293-01

PATIENT
  Age: 40 Year
  Sex: Female

DRUGS (3)
  1. LEXAPRO [Suspect]
     Indication: DEPRESSION
     Dates: start: 20041201
  2. INH [Concomitant]
  3. RIFAMPIN [Concomitant]

REACTIONS (3)
  - EXTREMITY NECROSIS [None]
  - HYPOAESTHESIA [None]
  - VASCULITIS [None]
